FAERS Safety Report 5609002-0 (Version None)
Quarter: 2008Q1

REPORT INFORMATION
  Report Type: 
  Country: None (occurrence: None)
  Receive Date: 20080131
  Receipt Date: 20080123
  Transmission Date: 20080703
  Serious: Yes (Other)
  Sender: FDA-Public Use
  Company Number: PHEH2008US00714

PATIENT
  Age: 78 Year
  Sex: Female

DRUGS (7)
  1. DIOVAN [Suspect]
     Dosage: 40 MG, UNK
     Dates: start: 20071101, end: 20080101
  2. DIOVAN [Suspect]
     Dosage: 80 MG, UNK
  3. COREG [Suspect]
     Dosage: 3.125 MG, BID
     Dates: start: 20070925, end: 20080101
  4. ATIVAN [Suspect]
  5. ATARAX [Suspect]
  6. INSULIN [Concomitant]
  7. TYLENOL [Suspect]

REACTIONS (4)
  - CONVULSION [None]
  - DRUG HYPERSENSITIVITY [None]
  - PURPURA [None]
  - RASH [None]
